FAERS Safety Report 22296565 (Version 1)
Quarter: 2023Q2

REPORT INFORMATION
  Report Type: Spontaneous
  Country: US (occurrence: US)
  Receive Date: 20230508
  Receipt Date: 20230508
  Transmission Date: 20230721
  Serious: No
  Sender: FDA-Public Use
  Company Number: US-ALKERMES INC.-ALK-2023-001915

PATIENT
  Sex: Male
  Weight: 116.96 kg

DRUGS (1)
  1. VIVITROL [Suspect]
     Active Substance: NALTREXONE
     Indication: Dependence
     Dosage: 380 MILLIGRAM, Q4WK
     Route: 030

REACTIONS (2)
  - Coronavirus infection [Unknown]
  - Cough [Unknown]
